FAERS Safety Report 6391613-9 (Version None)
Quarter: 2009Q4

REPORT INFORMATION
  Report Type: 
  Country: None (occurrence: None)
  Receive Date: 20091007
  Receipt Date: 20090721
  Transmission Date: 20100525
  Serious: Yes (Other)
  Sender: FDA-Public Use
  Company Number: A0786442A

PATIENT
  Age: 65 Year
  Sex: Male

DRUGS (7)
  1. ADVAIR DISKUS 100/50 [Suspect]
     Indication: CHRONIC OBSTRUCTIVE PULMONARY DISEASE
     Dosage: 2PUFF TWICE PER DAY
     Route: 055
     Dates: start: 20070527
  2. NEXIUM [Concomitant]
  3. PEPCID [Concomitant]
  4. LOTENSIN [Concomitant]
  5. CARDIZEM [Concomitant]
  6. FLOMAX [Concomitant]
  7. SINGULAIR [Concomitant]

REACTIONS (2)
  - ASTHMA [None]
  - PRODUCT QUALITY ISSUE [None]
